FAERS Safety Report 13277316 (Version 2)
Quarter: 2017Q1

REPORT INFORMATION
  Report Type: Report from Study
  Country: FR (occurrence: FR)
  Receive Date: 20170228
  Receipt Date: 20170302
  Transmission Date: 20170428
  Serious: Yes (Death, Other)
  Sender: FDA-Public Use
  Company Number: FR-BRISTOL-MYERS SQUIBB COMPANY-BMS-2017-016583

PATIENT
  Age: 54 Year
  Sex: Male
  Weight: 112 kg

DRUGS (12)
  1. TRIATEC                            /00885601/ [Concomitant]
     Active Substance: RAMIPRIL
     Indication: HYPERTENSION
     Dosage: 10 MG, QD
     Route: 065
     Dates: start: 2012, end: 20160816
  2. AMLOR [Concomitant]
     Active Substance: AMLODIPINE BESYLATE
     Indication: HYPERTENSION
     Dosage: 10 MG, QD
     Route: 065
     Dates: start: 2012, end: 20160816
  3. LASILIX                            /00032601/ [Concomitant]
     Active Substance: FUROSEMIDE
     Indication: HYPERTENSION
     Dosage: 40 MG, BID
     Route: 065
     Dates: start: 2012, end: 20160816
  4. SOFOSBUVIR [Suspect]
     Active Substance: SOFOSBUVIR
     Indication: HEPATITIS C
     Dosage: 400 MG, QD
     Route: 065
     Dates: start: 20141027, end: 20150413
  5. EUPRESSYL                          /00631801/ [Concomitant]
     Active Substance: URAPIDIL
     Indication: HYPERTENSION
     Dosage: 60 MG, BID
     Route: 065
     Dates: start: 2012, end: 20160816
  6. INSPRA [Concomitant]
     Active Substance: EPLERENONE
     Indication: CARDIOVASCULAR DISORDER
     Dosage: 60 MG, BID
     Route: 065
     Dates: start: 2012, end: 20160816
  7. JANUVIA [Concomitant]
     Active Substance: SITAGLIPTIN PHOSPHATE
     Indication: DIABETES MELLITUS
     Dosage: 100 MG, QD
     Route: 065
     Dates: start: 2012, end: 20160816
  8. SEROPLEX [Concomitant]
     Active Substance: ESCITALOPRAM OXALATE
     Indication: DEPRESSION
     Dosage: 20 MG, QD
     Route: 065
     Dates: start: 2013, end: 20160816
  9. BISOPROLOL [Concomitant]
     Active Substance: BISOPROLOL
     Indication: HYPERTENSION
     Dosage: 3.75 MG, QD
     Route: 065
     Dates: start: 2012, end: 20160816
  10. DACLATASVIR DIHYDROCHLORIDE [Suspect]
     Active Substance: DACLATASVIR DIHYDROCHLORIDE
     Indication: HEPATITIS C
     Dosage: 60 MG, QD
     Route: 065
     Dates: start: 20141027, end: 20150413
  11. AMAREL [Concomitant]
     Active Substance: GLIMEPIRIDE
     Indication: DIABETES MELLITUS
     Dosage: 2 MG, QD
     Route: 065
     Dates: start: 2007, end: 20160816
  12. XANAX [Concomitant]
     Active Substance: ALPRAZOLAM
     Indication: DEPRESSION
     Dosage: 0.5 MG, QID
     Route: 065
     Dates: start: 2013, end: 20160816

REACTIONS (5)
  - Pulmonary embolism [Unknown]
  - Hepatocellular carcinoma [Fatal]
  - Lymphadenopathy [Unknown]
  - Ascites [Unknown]
  - Hepatectomy [Unknown]

NARRATIVE: CASE EVENT DATE: 20150616
